FAERS Safety Report 15534821 (Version 1)
Quarter: 2018Q4

REPORT INFORMATION
  Report Type: Spontaneous
  Country: US (occurrence: US)
  Receive Date: 20181022
  Receipt Date: 20181022
  Transmission Date: 20190205
  Serious: No
  Sender: FDA-Public Use
  Company Number: US-TEVA-2018-US-963905

PATIENT
  Age: 72 Year
  Sex: Female

DRUGS (1)
  1. LORAZEPAM ACTAVIS [Suspect]
     Active Substance: LORAZEPAM
     Route: 065

REACTIONS (3)
  - Head discomfort [Unknown]
  - Dry mouth [Unknown]
  - Muscle spasms [Unknown]
